FAERS Safety Report 7911581-5 (Version None)
Quarter: 2011Q4

REPORT INFORMATION
  Report Type: 
  Country: None (occurrence: None)
  Receive Date: 20111028
  Receipt Date: 20110531
  Transmission Date: 20120403
  Serious: Yes (Other)
  Sender: FDA-Public Use
  Company Number: PHHY2011US51544

PATIENT
  Age: 60 Year
  Sex: Female

DRUGS (6)
  1. ATENOLOL [Concomitant]
  2. HYDROCHLOROTHIAZIDE [Concomitant]
  3. PRILOSEC [Concomitant]
  4. DOXEPIN HCL [Concomitant]
  5. ESTRADERM [Suspect]
     Dosage: TRANSDERMAL
     Route: 062
  6. LORATADINE [Concomitant]

REACTIONS (1)
  - HYPERTENSION [None]
